FAERS Safety Report 7797048-6 (Version None)
Quarter: 2011Q4

REPORT INFORMATION
  Report Type: 
  Country: None (occurrence: None)
  Receive Date: 20111005
  Receipt Date: 20110929
  Transmission Date: 20120403
  Serious: Yes (Death)
  Sender: FDA-Public Use
  Company Number: US-SANOFI-AVENTIS-2011SA063910

PATIENT
  Age: 78 Year
  Sex: Male

DRUGS (6)
  1. JEVTANA KIT [Suspect]
     Dosage: DOSE 52 (UNITS NOT PROVIDED)
     Route: 041
     Dates: start: 20101120, end: 20101120
  2. JEVTANA KIT [Suspect]
     Indication: PROSTATE CANCER
     Dosage: DOSE 52 (UNITS NOT PROVIDED)
     Route: 041
     Dates: start: 20100711, end: 20100711
  3. JEVTANA KIT [Suspect]
     Dosage: DOSE 52 (UNITS NOT PROVIDED)
     Route: 041
     Dates: start: 20101012, end: 20101012
  4. HORMONES AND RELATED AGENTS [Concomitant]
     Dosage: 4 ADMINISTRATIONS
  5. JEVTANA KIT [Suspect]
     Dosage: DOSE 52 (UNITS NOT PROVIDED)
     Route: 041
     Dates: start: 20100917, end: 20100917
  6. JEVTANA KIT [Suspect]
     Dosage: DOSE 52 (UNITS NOT PROVIDED)
     Route: 041
     Dates: start: 20100826, end: 20100826

REACTIONS (1)
  - DEATH [None]
